FAERS Safety Report 8002099-2 (Version None)
Quarter: 2011Q4

REPORT INFORMATION
  Report Type: 
  Country: None (occurrence: None)
  Receive Date: 20111222
  Receipt Date: 20111219
  Transmission Date: 20120403
  Serious: Yes (Other)
  Sender: FDA-Public Use
  Company Number: US-PFIZER INC-2011308906

PATIENT
  Sex: Female
  Weight: 38.549 kg

DRUGS (2)
  1. ZYVOX [Suspect]
     Indication: TUBERCULOSIS
     Dosage: 600 MG, DAILY
     Dates: start: 20110101, end: 20111217
  2. AMIKACIN [Suspect]
     Indication: TUBERCULOSIS
     Dosage: 750 MG, THREE TIMES IN A WEEK
     Route: 042
     Dates: end: 20110101

REACTIONS (1)
  - DEAFNESS [None]
